FAERS Safety Report 25954468 (Version 1)
Quarter: 2025Q4

REPORT INFORMATION
  Report Type: Spontaneous
  Country: US (occurrence: US)
  Receive Date: 20251024
  Receipt Date: 20251024
  Transmission Date: 20260118
  Serious: No
  Sender: ROCHE
  Company Number: US-ROCHE-10000411201

PATIENT
  Sex: Male

DRUGS (2)
  1. ESBRIET [Suspect]
     Active Substance: PIRFENIDONE
     Indication: Idiopathic pulmonary fibrosis
     Route: 048
     Dates: start: 202202
  2. MOTRIN [Concomitant]
     Active Substance: IBUPROFEN
     Dosage: TWO TABLETS OF 200MG TWICE A DAY FOR ONE WEEK, THEN ONE TABLET OF 200MCG BID FOR 1 WEEK

REACTIONS (1)
  - Limb injury [Unknown]
